FAERS Safety Report 9167781 (Version 1)
Quarter: 2013Q1

REPORT INFORMATION
  Report Type: Spontaneous
  Country: US (occurrence: US)
  Receive Date: 20130318
  Receipt Date: 20130318
  Transmission Date: 20140127
  Serious: Yes (Hospitalization)
  Sender: FDA-Public Use
  Company Number: PHEH2013US006095

PATIENT
  Sex: Male

DRUGS (9)
  1. TOBI [Suspect]
     Indication: CYSTIC FIBROSIS
     Dosage: 300 MG, BID
     Dates: start: 200701
  2. PULMOZYME [Concomitant]
  3. ZYRTEC [Concomitant]
  4. FLONASE [Concomitant]
  5. ALBUTEROL [Concomitant]
  6. DOXYCYCLINE [Concomitant]
  7. ZITHROMAX [Concomitant]
  8. DIGESTIVE ENZYME [Concomitant]
  9. CAYSTON [Concomitant]

REACTIONS (1)
  - Sinus congestion [Not Recovered/Not Resolved]
